FAERS Safety Report 24030268 (Version 1)
Quarter: 2024Q2

REPORT INFORMATION
  Report Type: Spontaneous
  Country: US (occurrence: US)
  Receive Date: 20240628
  Receipt Date: 20240628
  Transmission Date: 20240716
  Serious: No
  Sender: FDA-Public Use
  Company Number: US-SANDOZ-SDZ2023US021431

PATIENT
  Sex: Female

DRUGS (1)
  1. ALBUTEROL SULFATE [Suspect]
     Active Substance: ALBUTEROL SULFATE
     Indication: Emphysema
     Dosage: UNK, 2 SPRAYS, SHE USES WHEN SHE FEELS THAT, SHE NEEDS THE SPRAY, SHE HAS BEEN TRIED TO USE IT FOR 8
     Route: 055

REACTIONS (4)
  - Product dose omission issue [Unknown]
  - Drug delivery system issue [Unknown]
  - Device issue [Unknown]
  - Device difficult to use [Unknown]
